FAERS Safety Report 14420828 (Version 1)
Quarter: 2018Q1

REPORT INFORMATION
  Report Type: Spontaneous
  Country: US (occurrence: US)
  Receive Date: 20180122
  Receipt Date: 20180122
  Transmission Date: 20180509
  Serious: No
  Sender: FDA-Public Use
  Company Number: US-ROCHE-1922236

PATIENT
  Sex: Male

DRUGS (6)
  1. PREDNISONE. [Concomitant]
     Active Substance: PREDNISONE
  2. SULFASALAZINE DELAYED-RELEASE [Concomitant]
     Active Substance: SULFASALAZINE
  3. LISINOPRIL. [Concomitant]
     Active Substance: LISINOPRIL
  4. NORCO [Concomitant]
     Active Substance: ACETAMINOPHEN\HYDROCODONE BITARTRATE
  5. RITUXAN [Suspect]
     Active Substance: RITUXIMAB
     Indication: RHEUMATOID ARTHRITIS
     Dosage: WEEK 0 + 2
     Route: 042
     Dates: start: 20161022
  6. LEFLUNOMIDE. [Concomitant]
     Active Substance: LEFLUNOMIDE

REACTIONS (5)
  - Arthralgia [Unknown]
  - Joint stiffness [Unknown]
  - Fine motor skill dysfunction [Unknown]
  - Fatigue [Unknown]
  - Anxiety [Unknown]
